FAERS Safety Report 8618820 (Version 2)
Quarter: 2012Q4

REPORT INFORMATION
  Report Type: 
  Country: FR (occurrence: FR)
  Receive Date: 20120618
  Receipt Date: 20121017
  Transmission Date: 20130627
  Serious: Yes (Hospitalization)
  Sender: FDA-Public Use
  Company Number: FR-ELI_LILLY_AND_COMPANY-FR201206002288

PATIENT
  Age: 48 Year
  Sex: Female

DRUGS (3)
  1. ZYPADHERA [Suspect]
     Indication: SCHIZOPHRENIA
     Dosage: 405mg q 4 wks
     Route: 030
     Dates: start: 2011
  2. ZYPREXA [Suspect]
     Indication: SCHIZOPHRENIA
     Dosage: 20 mg, qd
  3. ZYPREXA [Suspect]
     Dosage: 5 mg, qd
     Route: 048
     Dates: start: 2011

REACTIONS (5)
  - Coma [Recovered/Resolved]
  - Confusional state [Recovered/Resolved]
  - Sedation [Recovered/Resolved]
  - Heart rate increased [Recovered/Resolved]
  - Hyperhidrosis [Recovered/Resolved]
